FAERS Safety Report 11875486 (Version 1)
Quarter: 2015Q4

REPORT INFORMATION
  Report Type: Spontaneous
  Country: US (occurrence: None)
  Receive Date: 20151228
  Receipt Date: 20151228
  Transmission Date: 20160305
  Serious: No
  Sender: FDA-Public Use
  Company Number: None

PATIENT
  Age: 42 Year

DRUGS (14)
  1. COXYCYCL [Concomitant]
  2. HYDROCOD/APAP [Concomitant]
  3. LEVOTHYROXIN [Concomitant]
     Active Substance: LEVOTHYROXINE
  4. LETROZOLE 2.5MG GILEAD [Suspect]
     Active Substance: LETROZOLE
     Indication: NEOPLASM MALIGNANT
     Route: 048
     Dates: start: 20151201
  5. PAROXETINE [Concomitant]
     Active Substance: PAROXETINE\PAROXETINE HYDROCHLORIDE
  6. LANTUS [Concomitant]
     Active Substance: INSULIN GLARGINE
  7. IBRANCE [Suspect]
     Active Substance: PALBOCICLIB
     Indication: NEOPLASM MALIGNANT
     Dosage: 125 MG, 21 DAY ON 7 OFF
     Route: 048
     Dates: start: 20151201
  8. BENEFIBER [Concomitant]
     Active Substance: STARCH, WHEAT
  9. CYCLOBENZAPR [Concomitant]
  10. LISINOPRIL AND HYDROCHLOROTHIAZIDE [Concomitant]
     Active Substance: HYDROCHLOROTHIAZIDE\LISINOPRIL
  11. XGEVA [Concomitant]
     Active Substance: DENOSUMAB
  12. ALPRAXOLAM [Concomitant]
  13. LEVEMIR [Concomitant]
     Active Substance: INSULIN DETEMIR
  14. ZOLPIDEM [Concomitant]
     Active Substance: ZOLPIDEM\ZOLPIDEM TARTRATE

REACTIONS (1)
  - Fatigue [None]

NARRATIVE: CASE EVENT DATE: 201512
